FAERS Safety Report 5316003-9 (Version None)
Quarter: 2007Q2

REPORT INFORMATION
  Report Type: 
  Country: None (occurrence: None)
  Receive Date: 20070503
  Receipt Date: 20070425
  Transmission Date: 20071010
  Serious: Yes (Other)
  Sender: FDA-Public Use
  Company Number: DE-SANOFI-SYNTHELABO-A04200700698

PATIENT
  Sex: Male
  Weight: 86 kg

DRUGS (1)
  1. ELOXATIN [Suspect]
     Indication: COLON CANCER STAGE IV
     Route: 041
     Dates: start: 20070423, end: 20070423

REACTIONS (3)
  - DYSPNOEA [None]
  - LARYNGOSPASM [None]
  - PAIN IN EXTREMITY [None]
